FAERS Safety Report 7227710-5 (Version None)
Quarter: 2011Q1

REPORT INFORMATION
  Report Type: 
  Country: None (occurrence: None)
  Receive Date: 20110114
  Receipt Date: 20101027
  Transmission Date: 20110831
  Serious: Yes (Death, Hospitalization, Other)
  Sender: FDA-Public Use
  Company Number: PHHY2010TH90099

PATIENT
  Age: 82 Year
  Sex: Male

DRUGS (1)
  1. ACLASTA [Suspect]
     Indication: OSTEOPOROSIS
     Dosage: 5 MG
     Route: 042
     Dates: start: 20100201

REACTIONS (5)
  - FALL [None]
  - LUNG NEOPLASM MALIGNANT [None]
  - FRACTURE [None]
  - ASTHENIA [None]
  - LUMBAR VERTEBRAL FRACTURE [None]
